FAERS Safety Report 7409018-8 (Version None)
Quarter: 2011Q2

REPORT INFORMATION
  Report Type: 
  Country: None (occurrence: None)
  Receive Date: 20110412
  Receipt Date: 20110407
  Transmission Date: 20111010
  Serious: Yes (Life-Threatening, Hospitalization, Other)
  Sender: FDA-Public Use
  Company Number: PHFR2010GB05605

PATIENT
  Sex: Female

DRUGS (4)
  1. VOLTAREN [Suspect]
  2. VOLTAREN [Suspect]
     Indication: OSTEOARTHRITIS
  3. VOLTAREN [Suspect]
     Indication: KNEE OPERATION
  4. VOLTAREN [Suspect]

REACTIONS (7)
  - HYPERSENSITIVITY [None]
  - PRURITUS GENERALISED [None]
  - NONSPECIFIC REACTION [None]
  - LIP SWELLING [None]
  - BACK PAIN [None]
  - OSTEOARTHRITIS [None]
  - DYSPNOEA [None]
